FAERS Safety Report 14303295 (Version 1)
Quarter: 2017Q4

REPORT INFORMATION
  Report Type: Spontaneous
  Country: FR (occurrence: FR)
  Receive Date: 20171219
  Receipt Date: 20171219
  Transmission Date: 20180321
  Serious: Yes (Other)
  Sender: FDA-Public Use
  Company Number: FR-OTSUKA-2015_009976

PATIENT
  Age: 29 Year
  Sex: Female

DRUGS (3)
  1. ABILIFY MAINTENA [Suspect]
     Active Substance: ARIPIPRAZOLE
     Indication: SCHIZOPHRENIA
     Dosage: 400 MG, QM
     Route: 030
     Dates: start: 201507, end: 201509
  2. ARIPIPRAZOLE. [Suspect]
     Active Substance: ARIPIPRAZOLE
     Indication: SCHIZOPHRENIA
     Dosage: 60 MG, QD
     Route: 048
     Dates: start: 2013
  3. ARIPIPRAZOLE. [Suspect]
     Active Substance: ARIPIPRAZOLE
     Dosage: 45 MG, QD
     Route: 048
     Dates: end: 201507

REACTIONS (4)
  - Off label use [Unknown]
  - Psychotic disorder [Not Recovered/Not Resolved]
  - Incorrect dose administered [Unknown]
  - Delirium [Not Recovered/Not Resolved]

NARRATIVE: CASE EVENT DATE: 2013
